FAERS Safety Report 14204326 (Version 3)
Quarter: 2017Q4

REPORT INFORMATION
  Report Type: Spontaneous
  Country: JP (occurrence: JP)
  Receive Date: 20171120
  Receipt Date: 20171211
  Transmission Date: 20180321
  Serious: Yes (Hospitalization)
  Sender: FDA-Public Use
  Company Number: PHJP2017JP033689

PATIENT
  Age: 64 Year
  Sex: Male

DRUGS (8)
  1. SIFROL [Suspect]
     Active Substance: PRAMIPEXOLE
     Dosage: 3 MG, UNK
     Route: 045
     Dates: start: 201711
  2. FP [Suspect]
     Active Substance: SELEGILINE HYDROCHLORIDE
     Indication: PARKINSON^S DISEASE
     Dosage: UNK
     Route: 048
     Dates: end: 201711
  3. STALEVO [Suspect]
     Active Substance: CARBIDOPA\ENTACAPONE\LEVODOPA
     Indication: PARKINSON^S DISEASE
     Dosage: 7 DF, QD TO BE DIVIDED INTO 4 TIMES DAILY (MORNING, NOON, EVENING, BEDTIME)
     Route: 048
     Dates: end: 201711
  4. NEUPRO [Suspect]
     Active Substance: ROTIGOTINE
     Indication: PARKINSON^S DISEASE
     Dosage: 27 MG, QD
     Route: 062
  5. TRERIEF [Suspect]
     Active Substance: ZONISAMIDE
     Dosage: UNK
     Route: 045
     Dates: start: 201711
  6. SIFROL [Suspect]
     Active Substance: PRAMIPEXOLE
     Indication: PARKINSON^S DISEASE
     Dosage: 3 MG, UNK
     Route: 048
     Dates: end: 201711
  7. TRERIEF [Suspect]
     Active Substance: ZONISAMIDE
     Indication: PARKINSON^S DISEASE
     Dosage: UNK
     Route: 048
     Dates: end: 201711
  8. FP [Suspect]
     Active Substance: SELEGILINE HYDROCHLORIDE
     Dosage: UNK
     Route: 045
     Dates: start: 201711

REACTIONS (2)
  - Musculoskeletal stiffness [Recovering/Resolving]
  - Pneumonia [Recovering/Resolving]

NARRATIVE: CASE EVENT DATE: 20171115
